FAERS Safety Report 18537339 (Version 1)
Quarter: 2020Q4

REPORT INFORMATION
  Report Type: Spontaneous
  Country: DE (occurrence: CN)
  Receive Date: 20201123
  Receipt Date: 20201123
  Transmission Date: 20210114
  Serious: Yes (Other)
  Sender: FDA-Public Use
  Company Number: CN-ELI_LILLY_AND_COMPANY-CN202011009302

PATIENT
  Age: 54 Year
  Sex: Male
  Weight: 60 kg

DRUGS (5)
  1. IRINOTECAN [Suspect]
     Active Substance: IRINOTECAN
     Indication: COLON CANCER
     Dosage: 300 MG, UNKNOWN
     Route: 042
     Dates: start: 20201002
  2. FLUOROURACIL. [Suspect]
     Active Substance: FLUOROURACIL
     Dosage: 4 G, NS (NORMAL SALINE) 230 ML CHEMOTHERAPY PUMP FOR 46H
     Route: 042
     Dates: start: 20201002
  3. ERBITUX [Suspect]
     Active Substance: CETUXIMAB
     Indication: COLON CANCER
     Dosage: UNK UNK, UNKNOWN
     Route: 042
     Dates: start: 20201002
  4. LEUCOVORIN CALCIUM. [Suspect]
     Active Substance: LEUCOVORIN CALCIUM
     Indication: COLON CANCER
     Dosage: NS (NORMAL SALINE) 100 ML
     Route: 042
     Dates: start: 20201002
  5. FLUOROURACIL. [Suspect]
     Active Substance: FLUOROURACIL
     Indication: COLON CANCER
     Dosage: 0.5 G NS (NORMAL SALINE) 500 ML
     Route: 040
     Dates: start: 20201002

REACTIONS (2)
  - Neutropenia [Recovering/Resolving]
  - White blood cell count decreased [Recovering/Resolving]

NARRATIVE: CASE EVENT DATE: 20201008
